FAERS Safety Report 8349023-0 (Version None)
Quarter: 2012Q2

REPORT INFORMATION
  Report Type: 
  Country: None (occurrence: None)
  Receive Date: 20120508
  Receipt Date: 20120425
  Transmission Date: 20120825
  Serious: Yes (Hospitalization)
  Sender: FDA-Public Use
  Company Number: 2012MA005427

PATIENT
  Age: 33 Year
  Sex: Female

DRUGS (1)
  1. METFORMIN HYDROCHLORIDE [Suspect]
     Indication: WEIGHT DECREASED
     Dosage: 850 MG

REACTIONS (2)
  - SELF-MEDICATION [None]
  - LEUKOCYTOCLASTIC VASCULITIS [None]
